FAERS Safety Report 8274275-5 (Version None)
Quarter: 2012Q2

REPORT INFORMATION
  Report Type: 
  Country: None (occurrence: None)
  Receive Date: 20120411
  Receipt Date: 20120411
  Transmission Date: 20120825
  Serious: Yes (Hospitalization)
  Sender: FDA-Public Use
  Company Number: None

PATIENT
  Age: 89 Year
  Sex: Male
  Weight: 77.1 kg

DRUGS (7)
  1. MIRALAX [Concomitant]
  2. PERCOCET [Concomitant]
  3. GABAPENTIN [Concomitant]
  4. LORAZEPAM [Concomitant]
  5. REYATA [Concomitant]
  6. VANCOMYCIN [Suspect]
  7. VALSARTAN [Concomitant]

REACTIONS (2)
  - TUBULOINTERSTITIAL NEPHRITIS [None]
  - RED MAN SYNDROME [None]
